FAERS Safety Report 10457795 (Version 1)
Quarter: 2014Q3

REPORT INFORMATION
  Report Type: Spontaneous
  Country: US (occurrence: US)
  Receive Date: 20140916
  Receipt Date: 20140916
  Transmission Date: 20150326
  Serious: Yes (Disabling)
  Sender: FDA-Public Use
  Company Number: US-GLAXOSMITHKLINE-A1084122A

PATIENT
  Age: 58 Year
  Sex: Female

DRUGS (1)
  1. ADVAIR HFA [Suspect]
     Active Substance: FLUTICASONE PROPIONATE\SALMETEROL XINAFOATE
     Indication: ASTHMA
     Route: 065
     Dates: start: 2004

REACTIONS (4)
  - Dyspnoea [Unknown]
  - Anxiety [Unknown]
  - Emotional disorder [Unknown]
  - Disability [Unknown]

NARRATIVE: CASE EVENT DATE: 1994
